FAERS Safety Report 12155491 (Version 1)
Quarter: 2016Q1

REPORT INFORMATION
  Report Type: Spontaneous
  Country: FR (occurrence: FR)
  Receive Date: 20160307
  Receipt Date: 20160307
  Transmission Date: 20160526
  Serious: Yes (Hospitalization, Other)
  Sender: FDA-Public Use
  Company Number: FR-JNJFOC-20160305479

PATIENT
  Age: 33 Year
  Sex: Female

DRUGS (3)
  1. ATARAX [Suspect]
     Active Substance: HYDROXYZINE\HYDROXYZINE HYDROCHLORIDE
     Indication: POISONING DELIBERATE
     Route: 048
     Dates: start: 20160216, end: 20160216
  2. IXPRIM [Suspect]
     Active Substance: ACETAMINOPHEN\TRAMADOL HYDROCHLORIDE
     Indication: POISONING DELIBERATE
     Route: 048
     Dates: start: 20160216, end: 20160216
  3. HAVLANE [Suspect]
     Active Substance: LOPRAZOLAM
     Indication: POISONING DELIBERATE
     Route: 048
     Dates: start: 20160216, end: 20160216

REACTIONS (5)
  - Drug level increased [Recovering/Resolving]
  - Somnolence [Recovered/Resolved]
  - Aggression [Unknown]
  - Intentional overdose [Recovered/Resolved]
  - Suicide attempt [Recovered/Resolved]

NARRATIVE: CASE EVENT DATE: 20160216
